FAERS Safety Report 6815378 (Version 2)
Quarter: 2012Q4

REPORT INFORMATION
  Report Type: 
  Country: CA (occurrence: CA)
  Receive Date: 20081119
  Receipt Date: 20121004
  Transmission Date: 20130627
  Serious: Yes (Other)
  Sender: FDA-Public Use
  Company Number: CA-JNJFOC-20081102987

PATIENT
  Age: 8 None
  Sex: Male
  Weight: 31.75 kg

DRUGS (4)
  1. CONCERTA [Suspect]
     Indication: ATTENTION DEFICIT/HYPERACTIVITY DISORDER
     Dates: start: 200709, end: 200801
  2. RITALIN [Concomitant]
     Dosage: in the morning
  3. SEROQUIL [Concomitant]
     Dosage: at the time of sleep
     Dates: start: 200706
  4. CLONIDINE [Concomitant]
     Dosage: at the time of sleep

REACTIONS (5)
  - Suicidal ideation [Unknown]
  - Anxiety [Unknown]
  - Depression [Not Recovered/Not Resolved]
  - Mental disorder [Unknown]
  - Migraine [Unknown]
